FAERS Safety Report 23611391 (Version 1)
Quarter: 2024Q1

REPORT INFORMATION
  Report Type: Spontaneous
  Country: BR (occurrence: BR)
  Receive Date: 20240308
  Receipt Date: 20240308
  Transmission Date: 20240410
  Serious: Yes (Other)
  Sender: FDA-Public Use
  Company Number: BR-ABBOTT-2021A-1343812

PATIENT
  Sex: Female

DRUGS (2)
  1. DEPAKOTE ER [Suspect]
     Active Substance: DIVALPROEX SODIUM
     Indication: Product used for unknown indication
     Dosage: DRUG DISCONTINUED
     Route: 065
  2. BROMAZEPAM [Concomitant]
     Active Substance: BROMAZEPAM
     Indication: Unevaluable event

REACTIONS (12)
  - Apnoea [Unknown]
  - Condition aggravated [Unknown]
  - Pain in extremity [Unknown]
  - Hot flush [Unknown]
  - Crying [Unknown]
  - Menopause [Unknown]
  - Hormone level abnormal [Unknown]
  - Screaming [Unknown]
  - Discomfort [Unknown]
  - Anxiety [Recovered/Resolved]
  - Lethargy [Not Recovered/Not Resolved]
  - Drug ineffective [Unknown]
